FAERS Safety Report 14426091 (Version 2)
Quarter: 2018Q1

REPORT INFORMATION
  Report Type: Spontaneous
  Country: US (occurrence: US)
  Receive Date: 20180123
  Receipt Date: 20180126
  Transmission Date: 20180509
  Serious: No
  Sender: FDA-Public Use
  Company Number: US-VIFOR (INTERNATIONAL) INC.-VIT-2017-14446

PATIENT
  Age: 70 Year
  Sex: Female
  Weight: 90.5 kg

DRUGS (15)
  1. ZEMPLAR [Concomitant]
     Active Substance: PARICALCITOL
     Route: 040
     Dates: start: 20170510
  2. ACETYLSALICYLIC ACID [Concomitant]
     Active Substance: ASPIRIN
     Dates: start: 20151009
  3. NOVOLIN N [Concomitant]
     Active Substance: INSULIN HUMAN
     Route: 058
     Dates: start: 20141029
  4. MIRCERA [Suspect]
     Active Substance: METHOXY POLYETHYLENE GLYCOL-EPOETIN BETA
     Route: 040
     Dates: start: 20171121
  5. LIQUACEL [Concomitant]
     Dates: start: 20160520
  6. MIRCERA [Suspect]
     Active Substance: METHOXY POLYETHYLENE GLYCOL-EPOETIN BETA
     Dosage: 75 MCG/0.3 ML
     Route: 040
     Dates: start: 20171223
  7. COWMADIN [Concomitant]
     Dates: start: 20160308
  8. HUMULIN N [Concomitant]
     Active Substance: INSULIN HUMAN
     Route: 058
     Dates: start: 20151109
  9. CRESTOR [Concomitant]
     Active Substance: ROSUVASTATIN CALCIUM
     Dates: start: 20151009
  10. RENVELA [Concomitant]
     Active Substance: SEVELAMER CARBONATE
     Dates: start: 20150506
  11. NOVOLOG [Concomitant]
     Active Substance: INSULIN ASPART
     Route: 058
     Dates: start: 20151109
  12. PARACETAMOL [Concomitant]
     Active Substance: ACETAMINOPHEN
     Dates: start: 20141029
  13. MIRCERA [Suspect]
     Active Substance: METHOXY POLYETHYLENE GLYCOL-EPOETIN BETA
     Route: 040
     Dates: start: 20171117
  14. MIRCERA [Suspect]
     Active Substance: METHOXY POLYETHYLENE GLYCOL-EPOETIN BETA
     Indication: PRODUCT USED FOR UNKNOWN INDICATION
     Dosage: 100 MCG/0.3 ML
     Route: 040
     Dates: start: 20171124
  15. VENOFER [Suspect]
     Active Substance: IRON SUCROSE
     Route: 040
     Dates: start: 20170512

REACTIONS (1)
  - Medication error [Recovered/Resolved]

NARRATIVE: CASE EVENT DATE: 20171121
